FAERS Safety Report 24864941 (Version 1)
Quarter: 2025Q1

REPORT INFORMATION
  Report Type: Report from Study
  Country: CA (occurrence: CA)
  Receive Date: 20250121
  Receipt Date: 20250121
  Transmission Date: 20250408
  Serious: Yes (Other)
  Sender: SANDOZ
  Company Number: CA-SANDOZ-SDZ2024CA066352

PATIENT
  Sex: Female

DRUGS (1)
  1. ERELZI [Suspect]
     Active Substance: ETANERCEPT-SZZS
     Indication: Rheumatoid arthritis
     Route: 058
     Dates: start: 20240620

REACTIONS (9)
  - Nephrolithiasis [Unknown]
  - Confusional state [Unknown]
  - COVID-19 [Unknown]
  - Dizziness [Unknown]
  - Injection site pain [Recovering/Resolving]
  - Injection site haemorrhage [Unknown]
  - Injection site bruising [Unknown]
  - Product dose omission issue [Unknown]
  - Incorrect dose administered [Unknown]
